FAERS Safety Report 9630593 (Version 1)
Quarter: 2013Q4

REPORT INFORMATION
  Report Type: Spontaneous
  Country: US (occurrence: None)
  Receive Date: 20131016
  Receipt Date: 20131016
  Transmission Date: 20140711
  Serious: Yes (Other)
  Sender: FDA-Public Use
  Company Number: None

PATIENT
  Age: 27 Year
  Sex: Female
  Weight: 67.13 kg

DRUGS (1)
  1. CYMBALTA 60MG LILLY [Suspect]
     Indication: NEURALGIA
     Route: 048
     Dates: start: 20111005, end: 20131010

REACTIONS (4)
  - Drug effect decreased [None]
  - Drug withdrawal syndrome [None]
  - Mood altered [None]
  - Suicide attempt [None]
